FAERS Safety Report 7913798-2 (Version None)
Quarter: 2011Q4

REPORT INFORMATION
  Report Type: 
  Country: None (occurrence: None)
  Receive Date: 20111115
  Receipt Date: 20111110
  Transmission Date: 20120403
  Serious: Yes (Hospitalization, Other)
  Sender: FDA-Public Use
  Company Number: IE-AMGEN-IRLSP2011039956

PATIENT
  Age: 57 Year
  Sex: Female

DRUGS (8)
  1. DEXAMETHASONE [Concomitant]
     Dosage: 4 MG, PER CHEMO REGIM
  2. MOTILIUM                           /00498201/ [Concomitant]
     Dosage: 20 MG, PRN
  3. IMODIUM [Concomitant]
     Dosage: UNK UNK, PRN
  4. ANTINEOPLASTIC AGENTS [Concomitant]
  5. SENOKOT [Concomitant]
     Dosage: UNK UNK, PRN
  6. EMEND                              /01627301/ [Concomitant]
     Dosage: UNK UNK, PER CHEMO REGIM
  7. NEULASTA [Suspect]
     Indication: CHEMOTHERAPY
     Dosage: 6 MG, Q2WK
     Route: 058
     Dates: start: 20110415
  8. LANSOPRAZOLE [Concomitant]
     Dosage: 30 MG, QD

REACTIONS (6)
  - DRUG ADMINISTRATION ERROR [None]
  - PHLEBITIS [None]
  - THERAPY REGIMEN CHANGED [None]
  - NEUTROPENIA [None]
  - INJURY ASSOCIATED WITH DEVICE [None]
  - PYREXIA [None]
